FAERS Safety Report 4998447-8 (Version None)
Quarter: 2006Q2

REPORT INFORMATION
  Report Type: 
  Country: None (occurrence: None)
  Receive Date: 20060510
  Receipt Date: 20060413
  Transmission Date: 20061013
  Serious: Yes (Other)
  Sender: FDA-Public Use
  Company Number: AU-GLAXOSMITHKLINE-B0421427A

PATIENT
  Sex: Male

DRUGS (3)
  1. KIVEXA [Suspect]
  2. VIDEX [Suspect]
  3. ATAZANAVIR [Suspect]

REACTIONS (3)
  - ADVERSE DRUG REACTION [None]
  - PANCREATITIS [None]
  - RASH [None]
